FAERS Safety Report 7406303-0 (Version None)
Quarter: 2011Q2

REPORT INFORMATION
  Report Type: 
  Country: None (occurrence: None)
  Receive Date: 20110411
  Receipt Date: 20110401
  Transmission Date: 20111010
  Serious: Yes (Hospitalization, Other)
  Sender: FDA-Public Use
  Company Number: US-MERCK-0905USA04108

PATIENT
  Age: 62 Year
  Sex: Female

DRUGS (3)
  1. FOSAMAX [Suspect]
     Indication: OSTEOPENIA
     Route: 048
     Dates: start: 20030101, end: 20070101
  2. QUINAPRIL HYDROCHLORIDE [Concomitant]
     Indication: HYPERTENSION
     Route: 065
     Dates: start: 19940101
  3. ATENOLOL [Concomitant]
     Route: 065
     Dates: start: 19940101

REACTIONS (25)
  - PAIN IN EXTREMITY [None]
  - EXOSTOSIS [None]
  - TOOTH DISORDER [None]
  - HYPOTENSION [None]
  - GINGIVAL DISORDER [None]
  - HIP FRACTURE [None]
  - AREFLEXIA [None]
  - ROAD TRAFFIC ACCIDENT [None]
  - OESOPHAGITIS [None]
  - OESOPHAGEAL ULCER [None]
  - BONE DENSITY DECREASED [None]
  - FALL [None]
  - VASCULAR CALCIFICATION [None]
  - RECTAL HAEMORRHAGE [None]
  - DECREASED APPETITE [None]
  - TENDONITIS [None]
  - ARTHRALGIA [None]
  - ABSCESS [None]
  - PARAESTHESIA [None]
  - FATIGUE [None]
  - OSTEONECROSIS OF JAW [None]
  - ANAEMIA [None]
  - CATARACT [None]
  - TOOTH FRACTURE [None]
  - DEVICE FAILURE [None]
